FAERS Safety Report 12972842 (Version 4)
Quarter: 2017Q1

REPORT INFORMATION
  Report Type: Spontaneous
  Country: US (occurrence: US)
  Receive Date: 20161124
  Receipt Date: 20170308
  Transmission Date: 20170428
  Serious: No
  Sender: FDA-Public Use
  Company Number: US-PFIZER INC-2016538897

PATIENT
  Age: 72 Year
  Sex: Female

DRUGS (2)
  1. LETROZOLE. [Concomitant]
     Active Substance: LETROZOLE
     Dosage: UNK
  2. IBRANCE [Suspect]
     Active Substance: PALBOCICLIB
     Dosage: 125 MG, UNK
     Dates: start: 20161104

REACTIONS (13)
  - Vomiting [Unknown]
  - Fatigue [Recovering/Resolving]
  - Dizziness [Unknown]
  - Hair texture abnormal [Unknown]
  - Nausea [Unknown]
  - Back pain [Recovered/Resolved]
  - Dysphagia [Unknown]
  - Anxiety [Unknown]
  - Alopecia [Unknown]
  - Blood glucose decreased [Unknown]
  - Presyncope [Unknown]
  - Balance disorder [Unknown]
  - Dry skin [Unknown]
